FAERS Safety Report 15232388 (Version 1)
Quarter: 2018Q3

REPORT INFORMATION
  Report Type: Spontaneous
  Country: US (occurrence: US)
  Receive Date: 20180709
  Receipt Date: 20180709
  Transmission Date: 20181010
  Serious: No
  Sender: FDA-Public Use
  Company Number: None

PATIENT
  Age: 61 Year
  Sex: Female
  Weight: 57.6 kg

DRUGS (16)
  1. AMANTADINE 100MG [Suspect]
     Active Substance: AMANTADINE
     Indication: DYSKINESIA
     Dosage: ?          QUANTITY:1 CAPSULE(S);?
     Route: 048
  2. POTASSIUM CL DR [Concomitant]
  3. FOLIC ACID. [Concomitant]
     Active Substance: FOLIC ACID
  4. IRON [Concomitant]
     Active Substance: IRON
  5. AMILORIDE [Concomitant]
     Active Substance: AMILORIDE
  6. ROPINIROLE. [Concomitant]
     Active Substance: ROPINIROLE
  7. TIZANIDINE. [Concomitant]
     Active Substance: TIZANIDINE
  8. DIAZEPAM. [Concomitant]
     Active Substance: DIAZEPAM
  9. AZILECT [Concomitant]
     Active Substance: RASAGILINE MESYLATE
  10. D?MANNOSE POWDER [Concomitant]
  11. LEVOTHYROXINE. [Concomitant]
     Active Substance: LEVOTHYROXINE
  12. MAGNESIUM [Concomitant]
     Active Substance: MAGNESIUM
  13. RYTARY [Concomitant]
     Active Substance: CARBIDOPA\LEVODOPA
  14. ESTRACE [Concomitant]
     Active Substance: ESTRADIOL
  15. VITAMIN D [Concomitant]
     Active Substance: CHOLECALCIFEROL
  16. CYANOCOBALAMIN. [Concomitant]
     Active Substance: CYANOCOBALAMIN

REACTIONS (24)
  - Alopecia [None]
  - Speech disorder [None]
  - Dysgraphia [None]
  - Paranoia [None]
  - Arthralgia [None]
  - Insomnia [None]
  - Impaired work ability [None]
  - Oedema peripheral [None]
  - Myalgia [None]
  - Erythema multiforme [None]
  - Memory impairment [None]
  - Tremor [None]
  - Vision blurred [None]
  - Feeling abnormal [None]
  - Weight increased [None]
  - Blister [None]
  - Rash [None]
  - Dysphagia [None]
  - Nuchal rigidity [None]
  - Toothache [None]
  - Parkinson^s disease [None]
  - Fall [None]
  - Reduced facial expression [None]
  - Herpes zoster [None]

NARRATIVE: CASE EVENT DATE: 20180701
